FAERS Safety Report 11156988 (Version 1)
Quarter: 2015Q2

REPORT INFORMATION
  Report Type: Spontaneous
  Country: FR (occurrence: FR)
  Receive Date: 20150602
  Receipt Date: 20150602
  Transmission Date: 20150821
  Serious: Yes (Life-Threatening, Other)
  Sender: FDA-Public Use
  Company Number: FR-BAXTER-2015BAX028270

PATIENT
  Age: 63 Year
  Sex: Female

DRUGS (3)
  1. ENDOXAN 1000 MG, POUDRE POUR SOLUTION INJECTABLE [Suspect]
     Active Substance: CYCLOPHOSPHAMIDE
     Indication: INVASIVE DUCTAL BREAST CARCINOMA
     Dosage: 4 COURSES
     Route: 042
     Dates: start: 20100611, end: 20100903
  2. TAXOTERE [Suspect]
     Active Substance: DOCETAXEL
     Indication: INVASIVE DUCTAL BREAST CARCINOMA
     Dosage: 4 COURSES
     Route: 042
     Dates: start: 20100611, end: 20100903
  3. HERCEPTIN [Suspect]
     Active Substance: TRASTUZUMAB
     Indication: INVASIVE DUCTAL BREAST CARCINOMA
     Route: 042
     Dates: start: 20100611, end: 20101217

REACTIONS (7)
  - Palmar-plantar erythrodysaesthesia syndrome [Recovered/Resolved]
  - Gastrointestinal haemorrhage [Unknown]
  - Lung disorder [Not Recovered/Not Resolved]
  - Neutropenia [Unknown]
  - Subileus [Recovering/Resolving]
  - Neuropathy peripheral [Not Recovered/Not Resolved]
  - Nail discolouration [Recovering/Resolving]

NARRATIVE: CASE EVENT DATE: 201006
